FAERS Safety Report 10467490 (Version 1)
Quarter: 2014Q3

REPORT INFORMATION
  Report Type: Spontaneous
  Country: JP (occurrence: JP)
  Receive Date: 20140922
  Receipt Date: 20140922
  Transmission Date: 20150326
  Serious: Yes (Other)
  Sender: FDA-Public Use
  Company Number: JP-ASTRAZENECA-2014SE70579

PATIENT
  Sex: Male

DRUGS (1)
  1. SEROQUEL [Suspect]
     Active Substance: QUETIAPINE FUMARATE
     Route: 048
     Dates: end: 20140909

REACTIONS (5)
  - C-reactive protein increased [Unknown]
  - Blood glucose increased [Unknown]
  - Decubitus ulcer [Unknown]
  - Speech disorder [Unknown]
  - Intentional product misuse [Recovered/Resolved]
